FAERS Safety Report 7180324-8 (Version None)
Quarter: 2010Q4

REPORT INFORMATION
  Report Type: 
  Country: None (occurrence: None)
  Receive Date: 20101221
  Receipt Date: 20101215
  Transmission Date: 20110411
  Serious: Yes (Death)
  Sender: FDA-Public Use
  Company Number: A0805683A

PATIENT
  Age: 53 Year
  Sex: Female

DRUGS (11)
  1. TYKERB [Suspect]
     Dosage: 1250MG PER DAY
     Route: 048
     Dates: start: 20090627, end: 20100313
  2. XELODA [Suspect]
     Route: 048
  3. PRISTIQ [Concomitant]
  4. OXYCODONE [Concomitant]
  5. BENICAR [Concomitant]
  6. CRESTOR [Concomitant]
  7. VITAMIN D SUPPLEMENT [Concomitant]
  8. SYNTHROID [Concomitant]
  9. CALCIUM SUPPLEMENT [Concomitant]
  10. M.V.I. [Concomitant]
  11. FISH OIL [Concomitant]

REACTIONS (6)
  - CHROMATURIA [None]
  - DEATH [None]
  - DYSURIA [None]
  - NAUSEA [None]
  - PRURITUS [None]
  - URINARY TRACT INFECTION [None]
